FAERS Safety Report 21669580 (Version 1)
Quarter: 2022Q4

REPORT INFORMATION
  Report Type: Spontaneous
  Country: JP (occurrence: None)
  Receive Date: 20221201
  Receipt Date: 20221201
  Transmission Date: 20230113
  Serious: Yes (Hospitalization, Other)
  Sender: FDA-Public Use
  Company Number: 2022A394706

PATIENT
  Age: 90 Year
  Sex: Male

DRUGS (2)
  1. QUETIAPINE [Suspect]
     Active Substance: QUETIAPINE
     Indication: Delirium
     Dosage: UNK UNK, UNKNOWN FREQ.
     Route: 065
  2. ASENAPINE MALEATE [Suspect]
     Active Substance: ASENAPINE MALEATE
     Indication: Restlessness
     Dosage: 10 MG, UNKNOWN FREQ.
     Route: 065

REACTIONS (3)
  - Parkinsonism [Recovering/Resolving]
  - Pneumonia aspiration [Recovering/Resolving]
  - Off label use [Unknown]
